FAERS Safety Report 5934470-4 (Version None)
Quarter: 2008Q4

REPORT INFORMATION
  Report Type: 
  Country: None (occurrence: None)
  Receive Date: 20081029
  Receipt Date: 20081017
  Transmission Date: 20090506
  Serious: Yes (Other)
  Sender: FDA-Public Use
  Company Number: US-PFIZER INC-2008087843

PATIENT
  Sex: Female
  Weight: 90.909 kg

DRUGS (7)
  1. NEURONTIN [Suspect]
     Indication: ANXIETY
  2. GEODON [Suspect]
     Indication: PSYCHOTIC DISORDER
     Dates: start: 20021101
  3. ZYPREXA [Suspect]
  4. RISPERDAL [Suspect]
     Dates: start: 19990101, end: 20021101
  5. XANAX [Suspect]
  6. GENERAL NUTRIENTS/MINERALS/VITAMINS [Suspect]
  7. SYNTHROID [Concomitant]

REACTIONS (15)
  - ABDOMINAL PAIN UPPER [None]
  - ANXIETY [None]
  - DIZZINESS [None]
  - DRUG INEFFECTIVE [None]
  - FOOD ALLERGY [None]
  - HALLUCINATION [None]
  - HUNGER [None]
  - HYPERGLYCAEMIA [None]
  - INTENTIONAL DRUG MISUSE [None]
  - MEMORY IMPAIRMENT [None]
  - PRURITUS [None]
  - THROAT CANCER [None]
  - TYPE 2 DIABETES MELLITUS [None]
  - URTICARIA [None]
  - WEIGHT INCREASED [None]
